FAERS Safety Report 5576837-2 (Version None)
Quarter: 2007Q4

REPORT INFORMATION
  Report Type: 
  Country: None (occurrence: None)
  Receive Date: 20071228
  Receipt Date: 20071225
  Transmission Date: 20080405
  Serious: Yes (Hospitalization)
  Sender: FDA-Public Use
  Company Number: JP-AVENTIS-200711988JP

PATIENT
  Age: 59 Year
  Sex: Male
  Weight: 81.5 kg

DRUGS (5)
  1. TAXOTERE [Suspect]
     Indication: NON-SMALL CELL LUNG CANCER RECURRENT
     Route: 041
     Dates: start: 20060403, end: 20070625
  2. SEROTONE [Concomitant]
     Route: 042
     Dates: start: 20060403, end: 20070625
  3. SEROTONE [Concomitant]
     Route: 042
     Dates: start: 20060403, end: 20070625
  4. DECADRON [Concomitant]
     Route: 042
     Dates: start: 20060403, end: 20070625
  5. DECADRON [Concomitant]
     Route: 042
     Dates: start: 20060403, end: 20070625

REACTIONS (1)
  - PANCREATITIS ACUTE [None]
